FAERS Safety Report 6194623-X (Version None)
Quarter: 2009Q2

REPORT INFORMATION
  Report Type: 
  Country: None (occurrence: None)
  Receive Date: 20090515
  Receipt Date: 20090430
  Transmission Date: 20091009
  Serious: Yes (Other)
  Sender: FDA-Public Use
  Company Number: GB-DEXCELPHARM-20090644

PATIENT
  Age: 74 Year
  Sex: Female

DRUGS (6)
  1. OMEPRAZOLE [Suspect]
     Indication: DYSPEPSIA
     Dosage: ORAL
     Route: 048
     Dates: start: 20090225, end: 20090304
  2. AQUEOUS CREAM [Concomitant]
  3. GAVISCON [Concomitant]
  4. LOSARTAN POTASSIUM [Concomitant]
  5. PAROXETINE HCL [Concomitant]
  6. VERAPAMIL [Concomitant]

REACTIONS (1)
  - OEDEMA PERIPHERAL [None]
